FAERS Safety Report 5409638-6 (Version None)
Quarter: 2007Q3

REPORT INFORMATION
  Report Type: 
  Country: None (occurrence: None)
  Receive Date: 20070807
  Receipt Date: 20070807
  Transmission Date: 20080115
  Serious: Yes (Other)
  Sender: FDA-Public Use
  Company Number: None

PATIENT
  Age: 40 Year
  Sex: Male
  Weight: 67.7 kg

DRUGS (1)
  1. PRECEDEX [Suspect]
     Indication: AGITATION
     Dosage: 0.2 MCG/KG- 0.7 MCG/KG PER HOUR IV DRIP
     Route: 041
     Dates: start: 20070710, end: 20070712

REACTIONS (1)
  - METABOLIC ACIDOSIS [None]
